FAERS Safety Report 17691197 (Version 1)
Quarter: 2020Q2

REPORT INFORMATION
  Report Type: Spontaneous
  Country: US (occurrence: US)
  Receive Date: 20200422
  Receipt Date: 20200422
  Transmission Date: 20200714
  Serious: No
  Sender: FDA-Public Use
  Company Number: US-009507513-2004USA006236

PATIENT
  Sex: Male

DRUGS (2)
  1. ASMANEX HFA [Suspect]
     Active Substance: MOMETASONE FUROATE
  2. ASMANEX [Suspect]
     Active Substance: MOMETASONE FUROATE

REACTIONS (2)
  - Drug ineffective [Unknown]
  - Dyspnoea [Recovered/Resolved]
